FAERS Safety Report 24300062 (Version 4)
Quarter: 2024Q4

REPORT INFORMATION
  Report Type: Spontaneous
  Country: US (occurrence: US)
  Receive Date: 20240909
  Receipt Date: 20241104
  Transmission Date: 20250114
  Serious: Yes (Hospitalization, Other)
  Sender: JOHNSON AND JOHNSON
  Company Number: US-JNJFOC-20240882070

PATIENT
  Age: 4 Decade
  Sex: Male

DRUGS (4)
  1. INVEGA SUSTENNA [Suspect]
     Active Substance: PALIPERIDONE PALMITATE
     Indication: Schizophrenia
     Dosage: LAST DOSE OF TREATMENT 01-OCT-2024
     Route: 030
     Dates: start: 202408
  2. INVEGA SUSTENNA [Suspect]
     Active Substance: PALIPERIDONE PALMITATE
  3. INVEGA SUSTENNA [Suspect]
     Active Substance: PALIPERIDONE PALMITATE
  4. RISPERDAL [Suspect]
     Active Substance: RISPERIDONE
     Indication: Schizophrenia
     Route: 048

REACTIONS (9)
  - Self-destructive behaviour [Unknown]
  - Hallucination, auditory [Unknown]
  - Psychotic disorder [Unknown]
  - Drug ineffective [Unknown]
  - Product dose omission issue [Unknown]
  - Hospitalisation [Unknown]
  - Abnormal behaviour [Unknown]
  - Mania [Unknown]
  - Aggression [Unknown]
